FAERS Safety Report 13285141 (Version 1)
Quarter: 2017Q1

REPORT INFORMATION
  Report Type: Spontaneous
  Country: US (occurrence: US)
  Receive Date: 20170301
  Receipt Date: 20170301
  Transmission Date: 20170428
  Serious: No
  Sender: FDA-Public Use
  Company Number: None

PATIENT
  Age: 60 Year
  Sex: Female
  Weight: 60.75 kg

DRUGS (1)
  1. SINGULAIR [Suspect]
     Active Substance: MONTELUKAST SODIUM
     Dosage: ?          QUANTITY:30 TABLET(S);?
     Route: 048

REACTIONS (2)
  - Drug screen positive [None]
  - Drug screen false positive [None]

NARRATIVE: CASE EVENT DATE: 20170301
